FAERS Safety Report 7302797-X (Version None)
Quarter: 2011Q1

REPORT INFORMATION
  Report Type: 
  Country: None (occurrence: None)
  Receive Date: 20110218
  Receipt Date: 20101129
  Transmission Date: 20110831
  Serious: No
  Sender: FDA-Public Use
  Company Number: US-BAYER-2010-007139

PATIENT
  Sex: Female
  Weight: 46 kg

DRUGS (3)
  1. LORAZEPAM [Concomitant]
  2. BLOOD PRESSURE MEDICATION (NOS) [Concomitant]
  3. ALEVE (CAPLET) [Suspect]
     Indication: MUSCULOSKELETAL PAIN
     Dosage: 220 MG, BID

REACTIONS (1)
  - MUSCULOSKELETAL PAIN [None]
